FAERS Safety Report 6545179-0 (Version None)
Quarter: 2010Q1

REPORT INFORMATION
  Report Type: 
  Country: None (occurrence: None)
  Receive Date: 20100115
  Receipt Date: 20100105
  Transmission Date: 20100710
  Serious: Yes (Other)
  Sender: FDA-Public Use
  Company Number: 2010000031

PATIENT

DRUGS (4)
  1. PROVIGIL [Suspect]
     Dosage: ORAL
     Route: 048
  2. NUVIGIL [Suspect]
     Dosage: ORAL
     Route: 048
  3. FESOTERODINE (FESOTERODINE) (TABLET) [Suspect]
     Dosage: ORAL
  4. DETROL [Suspect]

REACTIONS (1)
  - STEVENS-JOHNSON SYNDROME [None]
